FAERS Safety Report 10914283 (Version 2)
Quarter: 2016Q4

REPORT INFORMATION
  Report Type: Spontaneous
  Country: US (occurrence: US)
  Receive Date: 20150313
  Receipt Date: 20161223
  Transmission Date: 20170206
  Serious: No
  Sender: FDA-Public Use
  Company Number: US-APOTEX-2015AP007288

PATIENT
  Sex: Male

DRUGS (15)
  1. RESTASIS [Concomitant]
     Active Substance: CYCLOSPORINE
     Indication: FACIAL PARALYSIS
     Dosage: UNK
     Route: 065
     Dates: start: 20130904
  2. NYSTATIN. [Concomitant]
     Active Substance: NYSTATIN
     Indication: TINEA MANUUM
     Dosage: UNK
     Route: 065
     Dates: start: 20161012
  3. OMEPRAZOLE. [Concomitant]
     Active Substance: OMEPRAZOLE
     Indication: DYSPEPSIA
     Dosage: 20 MG, QD AS NEEDED
     Route: 048
     Dates: start: 20130226
  4. PROAIR HFA [Concomitant]
     Active Substance: ALBUTEROL SULFATE
     Indication: BRONCHOSPASM
  5. VIAGRA [Suspect]
     Active Substance: SILDENAFIL CITRATE
     Indication: PRODUCT USED FOR UNKNOWN INDICATION
     Dosage: 100 MG, PRN TAKE HALF TO ONE PILL 1 HOUR PRIOR TO INTERCOURSE
     Route: 048
     Dates: start: 20070205
  6. CHLORTHALIDONE. [Concomitant]
     Active Substance: CHLORTHALIDONE
     Indication: BLOOD PRESSURE MEASUREMENT
     Dosage: 1 DF, QD
     Route: 048
     Dates: start: 20130129
  7. NAFTIN [Concomitant]
     Active Substance: NAFTIFINE HYDROCHLORIDE
     Indication: PRODUCT USED FOR UNKNOWN INDICATION
     Dosage: UNK UNK, QD
     Route: 065
     Dates: start: 20081013
  8. POTASSIUM CHLORIDE. [Concomitant]
     Active Substance: POTASSIUM CHLORIDE
     Indication: HYPOKALAEMIA
     Dosage: `1 DF, QD
     Route: 065
     Dates: start: 20110310
  9. SLEEP AID                          /00000402/ [Concomitant]
     Active Substance: DIPHENHYDRAMINE HYDROCHLORIDE
     Indication: INSOMNIA
     Dosage: 1 DF, Q.H.S.
     Route: 048
     Dates: start: 20141023
  10. TRAZODONE HYDROCHLORIDE. [Suspect]
     Active Substance: TRAZODONE HYDROCHLORIDE
     Indication: PRODUCT USED FOR UNKNOWN INDICATION
     Dosage: UNK
     Route: 065
  11. ROZEREM [Concomitant]
     Active Substance: RAMELTEON
     Indication: INSOMNIA
     Dosage: 1 DF, Q.H.S.
     Route: 048
     Dates: start: 20161012
  12. PROAIR HFA [Concomitant]
     Active Substance: ALBUTEROL SULFATE
     Indication: BRONCHITIS
     Dosage: 2 UNK, QID 2 PUFFS AT BEDTIME
     Route: 055
     Dates: start: 20160317
  13. KLOR-CON M20 [Concomitant]
     Active Substance: POTASSIUM CHLORIDE
     Indication: PRODUCT USED FOR UNKNOWN INDICATION
     Dosage: 1 DF, QD
     Route: 048
  14. FLUTICASONE PROPIONATE. [Concomitant]
     Active Substance: FLUTICASONE PROPIONATE
     Indication: RHINITIS ALLERGIC
     Dosage: UNK, QD, USE 2 SPRAY IN EACH NOSTRIL
     Route: 048
     Dates: start: 20160412
  15. DOXAZOSIN MESYLATE. [Concomitant]
     Active Substance: DOXAZOSIN MESYLATE
     Indication: BENIGN PROSTATIC HYPERPLASIA
     Dosage: 1 DF, Q.H.S.
     Route: 048
     Dates: start: 20110105

REACTIONS (1)
  - Drug hypersensitivity [Unknown]
